FAERS Safety Report 10267061 (Version 2)
Quarter: 2014Q2

REPORT INFORMATION
  Report Type: Spontaneous
  Country: US (occurrence: US)
  Receive Date: 20140630
  Receipt Date: 20140630
  Transmission Date: 20141212
  Serious: No
  Sender: FDA-Public Use
  Company Number: US-SHIRE-20140515CINRY6477

PATIENT
  Age: 50 Year
  Sex: Male

DRUGS (2)
  1. CINRYZE [Suspect]
     Indication: HEREDITARY ANGIOEDEMA
     Dosage: 1000 UNITS, OTHER ( EVERY 3 DAYS)
     Route: 042
     Dates: start: 20131007
  2. CINRYZE [Suspect]
     Indication: PROPHYLAXIS
     Dosage: 1000 UNITS, OTHER (EVERY 3 DAYS)
     Route: 042
     Dates: start: 20121211

REACTIONS (2)
  - Extrasystoles [Recovered/Resolved]
  - Hereditary angioedema [Recovered/Resolved]
